FAERS Safety Report 4361392-5 (Version None)
Quarter: 2004Q2

REPORT INFORMATION
  Report Type: 
  Country: None (occurrence: None)
  Receive Date: 20040521
  Receipt Date: 20040108
  Transmission Date: 20050107
  Serious: Yes (Other)
  Sender: FDA-Public Use
  Company Number: PHBS2004BE00762

PATIENT
  Age: 78 Year
  Sex: Female

DRUGS (4)
  1. ZOMETA [Suspect]
     Indication: BREAST CANCER
     Dosage: 7 DOSES
     Route: 065
     Dates: end: 20030801
  2. CHEMOTHERAPEUTICS,OTHER [Concomitant]
  3. ZESTRIL [Concomitant]
  4. AREDIA [Suspect]
     Indication: BREAST CANCER
     Dosage: 22 DOSES
     Route: 065

REACTIONS (1)
  - NEPHRITIS INTERSTITIAL [None]
